FAERS Safety Report 8011126 (Version 7)
Quarter: 2013Q3

REPORT INFORMATION
  Report Type: Spontaneous
  Country: JP (occurrence: JP)
  Receive Date: 20110627
  Receipt Date: 20130731
  Transmission Date: 20140515
  Serious: Yes (Hospitalization)
  Sender: FDA-Public Use
  Company Number: JP-BAYER-2011-050273

PATIENT
  Age: 67 Year
  Sex: Male
  Weight: 53 kg

DRUGS (6)
  1. NEXAVAR [Suspect]
     Indication: HEPATOCELLULAR CARCINOMA
     Dosage: DAILY DOSE 400 MG
     Route: 048
     Dates: start: 20110301, end: 20110607
  2. NEXAVAR [Suspect]
     Indication: HEPATOCELLULAR CARCINOMA
     Dosage: DAILY DOSE 400 MG
     Route: 048
     Dates: start: 20120223, end: 20120404
  3. NORVASC [Concomitant]
     Indication: HYPERTENSION
     Dosage: DAILY DOSE 5 MG
     Route: 048
  4. NU-LOTAN [Concomitant]
     Indication: HYPERTENSION
     Dosage: DAILY DOSE 50 MG
     Route: 048
  5. URSO [Concomitant]
     Indication: HEPATITIS C
     Dosage: DAILY DOSE 100 MG
     Route: 048
  6. MIRIPLA [Concomitant]
     Dosage: DAILY DOSE 70 MG
     Route: 042
     Dates: start: 20110208

REACTIONS (2)
  - Nephrotic syndrome [Recovering/Resolving]
  - Proteinuria [Recovering/Resolving]
